FAERS Safety Report 5018623-8 (Version None)
Quarter: 2006Q2

REPORT INFORMATION
  Report Type: 
  Country: None (occurrence: None)
  Receive Date: 20060414
  Receipt Date: 20060103
  Transmission Date: 20061013
  Serious: No
  Sender: FDA-Public Use
  Company Number: 2006SP000022

PATIENT
  Age: 69 Year
  Sex: Male
  Weight: 114.76 kg

DRUGS (8)
  1. LUNESTA [Suspect]
     Indication: INSOMNIA
     Dosage: SEE IMAGE
     Route: 048
     Dates: start: 20051201, end: 20051201
  2. LUNESTA [Suspect]
     Indication: INSOMNIA
     Dosage: SEE IMAGE
     Route: 048
     Dates: start: 20051201, end: 20051201
  3. COZAAR [Concomitant]
  4. BYETTA [Concomitant]
  5. ZETIA [Concomitant]
  6. METFORMIN HCL [Concomitant]
  7. TAMSULOSIN HCL [Concomitant]
  8. HYDROCHLORIDE [Concomitant]

REACTIONS (1)
  - DYSGEUSIA [None]
